FAERS Safety Report 4636088-2 (Version None)
Quarter: 2005Q2

REPORT INFORMATION
  Report Type: 
  Country: None (occurrence: None)
  Receive Date: 20050325
  Receipt Date: 20041222
  Transmission Date: 20051028
  Serious: No
  Sender: FDA-Public Use
  Company Number: USA040671279

PATIENT
  Age: 75 Year
  Sex: Female

DRUGS (11)
  1. FORTEO [Suspect]
     Indication: OSTEOPOROSIS
     Dosage: 20 UG DAY
     Dates: start: 20040621
  2. TRIAMTERENE AND HYDROCHLOROTHIAZIDE [Concomitant]
  3. WARFARIN [Concomitant]
  4. SOTALOL HCL [Concomitant]
  5. LISINOPRIL [Concomitant]
  6. CARTIA XT [Concomitant]
  7. PREMARIN [Concomitant]
  8. HYTRIN [Concomitant]
  9. FOLIC ACID [Concomitant]
  10. ALPHAGAN P [Concomitant]
  11. XALATAN [Concomitant]

REACTIONS (9)
  - ARTHRALGIA [None]
  - ARTHRITIS [None]
  - CONSTIPATION [None]
  - CONTUSION [None]
  - GAIT DISTURBANCE [None]
  - INJECTION SITE HAEMORRHAGE [None]
  - MUSCLE SPASMS [None]
  - OSTEOPENIA [None]
  - PAIN IN EXTREMITY [None]
